FAERS Safety Report 7791364-X (Version None)
Quarter: 2011Q4

REPORT INFORMATION
  Report Type: 
  Country: None (occurrence: None)
  Receive Date: 20111003
  Receipt Date: 20110920
  Transmission Date: 20120403
  Serious: Yes (Hospitalization, Other)
  Sender: FDA-Public Use
  Company Number: US-ELI_LILLY_AND_COMPANY-US201109005600

PATIENT
  Sex: Male
  Weight: 99.8 kg

DRUGS (4)
  1. LOMOTIL [Concomitant]
     Indication: DIARRHOEA
     Dosage: UNK, PRN
     Route: 048
     Dates: start: 19950101
  2. METFORMIN HCL [Concomitant]
     Indication: DIABETES MELLITUS
     Dosage: UNK
     Route: 048
  3. FORTEO [Suspect]
     Indication: OSTEOPOROSIS
     Dosage: 20 UG, QD
     Route: 058
  4. REMICADE [Concomitant]
     Indication: RHEUMATOID ARTHRITIS
     Dosage: UNK
     Route: 042
     Dates: start: 20020101, end: 20101001

REACTIONS (7)
  - NAUSEA [None]
  - HIP FRACTURE [None]
  - RIB FRACTURE [None]
  - LOSS OF CONSCIOUSNESS [None]
  - NEPHROLITHIASIS [None]
  - BLOOD CHOLESTEROL INCREASED [None]
  - FALL [None]
